FAERS Safety Report 4994237-0 (Version None)
Quarter: 2006Q1

REPORT INFORMATION
  Report Type: 
  Country: None (occurrence: None)
  Receive Date: 20060313
  Receipt Date: 20051103
  Transmission Date: 20060701
  Serious: Yes (Other)
  Sender: FDA-Public Use
  Company Number: PHEH2005US12182

PATIENT
  Sex: Female

DRUGS (2)
  1. TRILEPTAL [Suspect]
     Dosage: 300 MG,BID,ORAL
     Route: 048
  2. LEXAPRO [Concomitant]

REACTIONS (3)
  - BLISTER [None]
  - MUCOUS MEMBRANE DISORDER [None]
  - RASH [None]
